FAERS Safety Report 7002625-6 (Version None)
Quarter: 2010Q3

REPORT INFORMATION
  Report Type: 
  Country: None (occurrence: None)
  Receive Date: 20100920
  Receipt Date: 20070507
  Transmission Date: 20110219
  Serious: Yes (Other)
  Sender: FDA-Public Use
  Company Number: US-ASTRAZENECA-2006UW10761

PATIENT
  Age: 17412 Day
  Sex: Male
  Weight: 118.8 kg

DRUGS (5)
  1. SEROQUEL [Suspect]
     Indication: BIPOLAR DISORDER
     Dosage: 50-800 MG
     Route: 048
     Dates: start: 20030410
  2. ZYPREXA [Suspect]
     Dates: start: 19961231, end: 19970610
  3. RISPERDAL [Suspect]
     Dosage: 1-4 MG
     Route: 048
     Dates: start: 20031009
  4. LITHIUM [Concomitant]
     Dosage: 150-1350 MG
     Route: 048
     Dates: start: 19880101
  5. GEMFIBROZIL [Concomitant]
     Dates: start: 20031009

REACTIONS (4)
  - DIABETES MELLITUS [None]
  - DIABETIC COMA [None]
  - INSULIN-REQUIRING TYPE 2 DIABETES MELLITUS [None]
  - TYPE 1 DIABETES MELLITUS [None]
